FAERS Safety Report 11938473 (Version 2)
Quarter: 2016Q2

REPORT INFORMATION
  Report Type: Spontaneous
  Country: US (occurrence: US)
  Receive Date: 20160122
  Receipt Date: 20160418
  Transmission Date: 20160815
  Serious: Yes (Hospitalization)
  Sender: FDA-Public Use
  Company Number: US-PFIZER INC-2016009773

PATIENT
  Age: 63 Year
  Sex: Female

DRUGS (2)
  1. IBRANCE [Suspect]
     Active Substance: PALBOCICLIB
     Dosage: 125MG, CYCLIC (1 CAP QHS,ONCE DAILY FOR 21 DAYS DAYS ON AND 7 DAYS OFF)
     Route: 048
     Dates: start: 20150824
  2. LETROZOLE. [Suspect]
     Active Substance: LETROZOLE
     Dosage: 2.5 MG, DAILY (QD)
     Route: 048

REACTIONS (2)
  - Cough [Unknown]
  - Vomiting [Unknown]
